FAERS Safety Report 10567920 (Version 3)
Quarter: 2015Q1

REPORT INFORMATION
  Report Type: Report from Study
  Country: JP (occurrence: JP)
  Receive Date: 20141106
  Receipt Date: 20150113
  Transmission Date: 20150720
  Serious: Yes (Other)
  Sender: FDA-Public Use
  Company Number: JP-AMGEN-JPNCT2014085922

PATIENT
  Age: 4 Year
  Sex: Female
  Weight: 13 kg

DRUGS (8)
  1. ATARAX [Concomitant]
     Active Substance: HYDROXYZINE\HYDROXYZINE HYDROCHLORIDE
     Indication: ALLERGY PROPHYLAXIS
     Dosage: 30 MG, QID
     Route: 042
     Dates: start: 20141020, end: 20141029
  2. ACELIO [Concomitant]
     Active Substance: ACETAMINOPHEN
     Indication: PYREXIA
     Dosage: 520 MG, QID
     Route: 042
     Dates: start: 20141020, end: 20141028
  3. BAKTAR [Concomitant]
     Active Substance: SULFAMETHOXAZOLE\TRIMETHOPRIM
     Indication: PNEUMOCYSTIS JIROVECII PNEUMONIA
     Dosage: 2.6 G, 2X/WEEK
     Route: 048
     Dates: start: 20141010
  4. PICOSULFATE DE SODIUM [Concomitant]
     Indication: CONSTIPATION
     Dosage: 6 GTT, PRN
     Route: 048
     Dates: start: 20141021, end: 20141021
  5. MIRIMOSTIM [Concomitant]
     Active Substance: MIRIMOSTIM
     Indication: NEUROBLASTOMA
     Dosage: 10 MG, UNK
     Route: 065
     Dates: start: 20141017, end: 20141021
  6. FILGRASTIM [Suspect]
     Active Substance: FILGRASTIM
     Indication: NEUROBLASTOMA
     Dosage: 64 MCG, UNK
     Route: 058
     Dates: start: 20141017, end: 20141021
  7. MORPHINE HYDROCHLORIDE [Concomitant]
     Active Substance: MORPHINE HYDROCHLORIDE
     Indication: PAIN
     Dosage: 10 MG, UNK
     Route: 042
     Dates: start: 20141020, end: 20141021
  8. LOXOPROFEN SODIUM [Concomitant]
     Active Substance: LOXOPROFEN SODIUM
     Indication: PYREXIA
     Dosage: 13 MG, PRN
     Route: 048
     Dates: start: 20141021, end: 20141023

REACTIONS (1)
  - Alanine aminotransferase increased [Recovered/Resolved]

NARRATIVE: CASE EVENT DATE: 20141021
